FAERS Safety Report 8143940-2 (Version None)
Quarter: 2012Q1

REPORT INFORMATION
  Report Type: 
  Country: None (occurrence: None)
  Receive Date: 20120217
  Receipt Date: 20120206
  Transmission Date: 20120608
  Serious: Yes (Death)
  Sender: FDA-Public Use
  Company Number: GB-JNJFOC-20120204583

PATIENT
  Age: 72 Year
  Sex: Female
  Weight: 59 kg

DRUGS (2)
  1. REMICADE [Suspect]
     Indication: RHEUMATOID ARTHRITIS
     Route: 042
     Dates: start: 20040815, end: 20041216
  2. CORTICOSTEROIDS [Concomitant]
     Indication: RHEUMATOID ARTHRITIS

REACTIONS (2)
  - COLON CANCER [None]
  - RENAL CANCER [None]
